FAERS Safety Report 5588092-8 (Version None)
Quarter: 2008Q1

REPORT INFORMATION
  Report Type: 
  Country: None (occurrence: None)
  Receive Date: 20080111
  Receipt Date: 20080104
  Transmission Date: 20080703
  Serious: Yes (Hospitalization)
  Sender: FDA-Public Use
  Company Number: US-BAYER-200713462BCC

PATIENT
  Age: 23 Year
  Sex: Male
  Weight: 41 kg

DRUGS (2)
  1. ALEVE [Suspect]
     Indication: BACK PAIN
     Dosage: TOTAL DAILY DOSE: 880 MG  UNIT DOSE: 220 MG
     Route: 048
     Dates: start: 20070201
  2. ULTRAM [Suspect]
     Indication: VACTERL SYNDROME
     Dates: start: 20070201

REACTIONS (8)
  - DEHYDRATION [None]
  - EATING DISORDER [None]
  - GASTRIC ULCER HAEMORRHAGE [None]
  - METABOLIC DISORDER [None]
  - SYNCOPE [None]
  - VOMITING [None]
  - WATER POLLUTION [None]
  - WEIGHT DECREASED [None]
